FAERS Safety Report 9855363 (Version 4)
Quarter: 2016Q4

REPORT INFORMATION
  Report Type: Spontaneous
  Country: US (occurrence: US)
  Receive Date: 20140130
  Receipt Date: 20161208
  Transmission Date: 20170207
  Serious: Yes (Life-Threatening, Hospitalization)
  Sender: FDA-Public Use
  Company Number: US-BAYER-2014-014315

PATIENT
  Age: 30 Year
  Sex: Female
  Weight: 58.96 kg

DRUGS (9)
  1. ELOCON [Concomitant]
     Active Substance: MOMETASONE FUROATE
  2. MIRENA [Suspect]
     Active Substance: LEVONORGESTREL
     Indication: CONTRACEPTION
     Dosage: 20 MCG/24HR, CONT
     Route: 015
     Dates: start: 20120203, end: 20120405
  3. VITAMIN D [COLECALCIFEROL] [Concomitant]
  4. MIRENA [Suspect]
     Active Substance: LEVONORGESTREL
  5. FISH OIL [Concomitant]
     Active Substance: FISH OIL
  6. ONDANSETRON HYDROCHLORIDE. [Concomitant]
     Active Substance: ONDANSETRON HYDROCHLORIDE
  7. COLACE [Concomitant]
     Active Substance: DOCUSATE SODIUM
  8. IRON [Concomitant]
     Active Substance: IRON
  9. FOLIC ACID. [Concomitant]
     Active Substance: FOLIC ACID

REACTIONS (6)
  - Device issue [Unknown]
  - Abdominal pain lower [Unknown]
  - General physical health deterioration [Unknown]
  - Injury [Unknown]
  - Menorrhagia [None]
  - Uterine perforation [Unknown]

NARRATIVE: CASE EVENT DATE: 201204
